FAERS Safety Report 8180248-3 (Version None)
Quarter: 2012Q1

REPORT INFORMATION
  Report Type: 
  Country: None (occurrence: None)
  Receive Date: 20120302
  Receipt Date: 20110121
  Transmission Date: 20120608
  Serious: No
  Sender: FDA-Public Use
  Company Number: US-GLAXOSMITHKLINE-A0908055A

PATIENT
  Sex: Female

DRUGS (3)
  1. ZYRTEC [Concomitant]
  2. OLUX E [Suspect]
     Indication: DERMATITIS CONTACT
     Route: 061
     Dates: start: 20110120
  3. FLOVENT [Concomitant]

REACTIONS (1)
  - FATIGUE [None]
